FAERS Safety Report 14680008 (Version 1)
Quarter: 2018Q1

REPORT INFORMATION
  Report Type: Spontaneous
  Country: US (occurrence: US)
  Receive Date: 20180325
  Receipt Date: 20180325
  Transmission Date: 20180509
  Serious: No
  Sender: FDA-Public Use
  Company Number: None

PATIENT
  Age: 5 Year
  Sex: Female

DRUGS (4)
  1. CEFDENIR [Suspect]
     Active Substance: CEFDINIR
     Indication: EAR INFECTION
     Dosage: 0.5 TEASPOON(S); TWICE A DAY ORAL?
     Route: 048
     Dates: start: 20180316, end: 20180322
  2. MOTRIN [Concomitant]
     Active Substance: IBUPROFEN
  3. CEFDENIR [Suspect]
     Active Substance: CEFDINIR
     Indication: EAR INFECTION
     Dosage: 1 TEASPOON(S); TWICE A DAY ORAL
     Route: 048
     Dates: start: 20180320, end: 20180325
  4. ZYRTEC [Concomitant]
     Active Substance: CETIRIZINE HYDROCHLORIDE

REACTIONS (4)
  - Abdominal discomfort [None]
  - Condition aggravated [None]
  - Drug ineffective [None]
  - Ear infection [None]

NARRATIVE: CASE EVENT DATE: 20180322
